FAERS Safety Report 8973995 (Version 1)
Quarter: 2012Q4

REPORT INFORMATION
  Report Type: 
  Country: US (occurrence: US)
  Receive Date: 20121218
  Receipt Date: 20121218
  Transmission Date: 20130627
  Serious: No
  Sender: FDA-Public Use
  Company Number: US-BRISTOL-MYERS SQUIBB COMPANY-16836322

PATIENT
  Age: 40 Year
  Sex: Male

DRUGS (1)
  1. ABILIFY TABS 5 MG [Suspect]
     Indication: MAJOR DEPRESSION
     Dosage: breaking 5 mg tablet in half to obtain a dosage of 2.5 mg

REACTIONS (2)
  - Dysphonia [Unknown]
  - Wrong technique in drug usage process [Unknown]
